FAERS Safety Report 21051809 (Version 1)
Quarter: 2022Q3

REPORT INFORMATION
  Report Type: Other
  Country: US (occurrence: None)
  Receive Date: 20220707
  Receipt Date: 20220707
  Transmission Date: 20221027
  Serious: No
  Sender: FDA-Public Use
  Company Number: US-ROCHE-2134755

PATIENT
  Sex: Female
  Weight: 63.560 kg

DRUGS (1)
  1. OCREVUS [Suspect]
     Active Substance: OCRELIZUMAB
     Indication: Relapsing multiple sclerosis
     Dosage: ONGOING: UNKNOWN
     Route: 042
     Dates: start: 20180524

REACTIONS (14)
  - Malaise [Not Recovered/Not Resolved]
  - Fatigue [Not Recovered/Not Resolved]
  - Asthenia [Not Recovered/Not Resolved]
  - Dizziness [Not Recovered/Not Resolved]
  - Thinking abnormal [Not Recovered/Not Resolved]
  - COVID-19 [Recovered/Resolved]
  - Depression [Not Recovered/Not Resolved]
  - Fall [Unknown]
  - Rib fracture [Recovered/Resolved]
  - Asthma [Not Recovered/Not Resolved]
  - Eczema [Not Recovered/Not Resolved]
  - Contrast media allergy [Not Recovered/Not Resolved]
  - Paraesthesia [Not Recovered/Not Resolved]
  - Cough [Not Recovered/Not Resolved]

NARRATIVE: CASE EVENT DATE: 20200101
